FAERS Safety Report 5325599-2 (Version None)
Quarter: 2007Q2

REPORT INFORMATION
  Report Type: 
  Country: None (occurrence: None)
  Receive Date: 20070515
  Receipt Date: 20070502
  Transmission Date: 20071010
  Serious: Yes (Hospitalization)
  Sender: FDA-Public Use
  Company Number: PT-ELI_LILLY_AND_COMPANY-PT200703001906

PATIENT
  Age: 55 Year
  Sex: Male

DRUGS (5)
  1. DULOXETINE HYDROCHLORIDE [Suspect]
     Indication: BIPOLAR DISORDER
     Dosage: 60 MG, EACH MORNING
     Route: 048
     Dates: start: 20061202, end: 20061230
  2. ZYPREXA [Suspect]
     Indication: BIPOLAR DISORDER
     Dosage: 10 MG, DAILY (1/D)
     Route: 048
     Dates: start: 20030607, end: 20070118
  3. DIAZEPAM [Concomitant]
     Dosage: 15 MG, DAILY (1/D)
     Route: 048
     Dates: start: 20031218, end: 20061230
  4. INDERAL [Concomitant]
     Dosage: 80 MG, DAILY (1/D)
     Dates: start: 20070103
  5. AKINETON [Concomitant]
     Indication: AKATHISIA
     Dates: start: 20061202

REACTIONS (2)
  - AKATHISIA [None]
  - SUICIDE ATTEMPT [None]
